FAERS Safety Report 11324351 (Version 2)
Quarter: 2015Q3

REPORT INFORMATION
  Report Type: Spontaneous
  Country: US (occurrence: US)
  Receive Date: 20150730
  Receipt Date: 20150811
  Transmission Date: 20151125
  Serious: No
  Sender: FDA-Public Use
  Company Number: US-BAYER-2015-382962

PATIENT
  Age: 43 Year
  Sex: Female

DRUGS (1)
  1. LOTRIMIN ULTRA ANTIFUNGAL [Suspect]
     Active Substance: BUTENAFINE HYDROCHLORIDE
     Indication: RASH
     Dosage: UNK
     Dates: start: 201507, end: 201507

REACTIONS (3)
  - Product use issue [Unknown]
  - Rash [Unknown]
  - Rash pruritic [None]

NARRATIVE: CASE EVENT DATE: 201507
